FAERS Safety Report 5601612-X (Version None)
Quarter: 2008Q1

REPORT INFORMATION
  Report Type: 
  Country: None (occurrence: None)
  Receive Date: 20080124
  Receipt Date: 20080114
  Transmission Date: 20080703
  Serious: Yes (Other)
  Sender: FDA-Public Use
  Company Number: US-SANOFI-SYNTHELABO-A03200800134

PATIENT
  Sex: Male

DRUGS (2)
  1. AMBIEN [Suspect]
     Indication: INSOMNIA
     Dosage: UNK
     Route: 048
  2. AMBIEN [Suspect]
     Dosage: FOR 5 YEARS WAS TAKING 20 MG
     Route: 048

REACTIONS (2)
  - CONVULSION [None]
  - DRUG ABUSE [None]
